FAERS Safety Report 13042792 (Version 1)
Quarter: 2016Q4

REPORT INFORMATION
  Report Type: Spontaneous
  Country: US (occurrence: US)
  Receive Date: 20161219
  Receipt Date: 20161219
  Transmission Date: 20170207
  Serious: No
  Sender: FDA-Public Use
  Company Number: US-GLAXOSMITHKLINE-US2016187129

PATIENT
  Age: 78 Year
  Sex: Male

DRUGS (10)
  1. DOXAZOSIN [Concomitant]
     Active Substance: DOXAZOSIN\DOXAZOSIN MESYLATE
  2. FINASTERIDE. [Concomitant]
     Active Substance: FINASTERIDE
  3. CARTIA XT [Concomitant]
     Active Substance: DILTIAZEM HYDROCHLORIDE
  4. ASPIRIN. [Concomitant]
     Active Substance: ASPIRIN
  5. ALBUTEROL INHALER [Concomitant]
     Active Substance: ALBUTEROL
  6. WARFARIN [Concomitant]
     Active Substance: WARFARIN
  7. ATORVASTATIN [Concomitant]
     Active Substance: ATORVASTATIN
  8. BREO ELLIPTA [Suspect]
     Active Substance: FLUTICASONE FUROATE\VILANTEROL TRIFENATATE
     Indication: CHRONIC OBSTRUCTIVE PULMONARY DISEASE
     Dosage: 1 PUFF(S), QD
     Route: 055
     Dates: start: 20161204
  9. TUDORZA PRESSAIR [Concomitant]
     Active Substance: ACLIDINIUM BROMIDE
  10. ADVAIR DISKUS [Suspect]
     Active Substance: FLUTICASONE PROPIONATE\SALMETEROL XINAFOATE
     Indication: CHRONIC OBSTRUCTIVE PULMONARY DISEASE
     Dosage: 1 PUFF(S), QD
     Route: 055
     Dates: start: 2013

REACTIONS (4)
  - Drug effect decreased [Not Recovered/Not Resolved]
  - Intentional underdose [Unknown]
  - Intentional product misuse [Unknown]
  - Dyspnoea [Not Recovered/Not Resolved]

NARRATIVE: CASE EVENT DATE: 201612
